FAERS Safety Report 16702894 (Version 1)
Quarter: 2019Q3

REPORT INFORMATION
  Report Type: Spontaneous
  Country: FR (occurrence: FR)
  Receive Date: 20190814
  Receipt Date: 20190814
  Transmission Date: 20191004
  Serious: Yes (Hospitalization)
  Sender: FDA-Public Use
  Company Number: FR-JNJFOC-20190815769

PATIENT
  Age: 16 Year
  Sex: Male

DRUGS (4)
  1. BEDAQUILINE [Suspect]
     Active Substance: BEDAQUILINE
     Indication: TUBERCULOSIS
     Route: 048
     Dates: start: 20161007
  2. AMIKACINE                          /00391001/ [Suspect]
     Active Substance: AMIKACIN
     Indication: TUBERCULOSIS
     Route: 030
     Dates: start: 20161007
  3. ZYVOXID [Suspect]
     Active Substance: LINEZOLID
     Indication: TUBERCULOSIS
     Route: 048
     Dates: start: 20161007
  4. IZILOX [Suspect]
     Active Substance: MOXIFLOXACIN HYDROCHLORIDE
     Indication: TUBERCULOSIS
     Route: 048
     Dates: start: 20161007, end: 20170102

REACTIONS (3)
  - Hallucination, auditory [Recovered/Resolved]
  - Suicidal ideation [Recovered/Resolved]
  - Depression [Recovered/Resolved]

NARRATIVE: CASE EVENT DATE: 201612
